FAERS Safety Report 8593585 (Version 4)
Quarter: 2014Q1

REPORT INFORMATION
  Report Type: Spontaneous
  Country: US (occurrence: US)
  Receive Date: 20120604
  Receipt Date: 20140123
  Transmission Date: 20141002
  Serious: Yes (Hospitalization, Disabling, Other)
  Sender: FDA-Public Use
  Company Number: US-ASTRAZENECA-2012SE34878

PATIENT
  Age: 64 Year
  Sex: Female
  Weight: 91.6 kg

DRUGS (21)
  1. NEXIUM [Suspect]
     Indication: GASTROOESOPHAGEAL REFLUX DISEASE
     Dosage: 1 DAILY
     Route: 048
  2. NEXIUM [Suspect]
     Indication: GASTROOESOPHAGEAL REFLUX DISEASE
     Route: 048
     Dates: start: 20010807
  3. NEXIUM [Suspect]
     Indication: GASTROOESOPHAGEAL REFLUX DISEASE
     Route: 048
     Dates: start: 20061201
  4. PRILOSEC [Suspect]
     Dosage: 1 DAILY
     Route: 048
  5. TUMS [Concomitant]
     Indication: BONE DISORDER
  6. ZANTAC [Concomitant]
  7. MAALOX [Concomitant]
  8. ALKA SELTZER [Concomitant]
  9. PROTONIX [Concomitant]
     Indication: GASTROOESOPHAGEAL REFLUX DISEASE
     Dosage: 1 DAILY
  10. PROTONIX [Concomitant]
     Indication: GASTROOESOPHAGEAL REFLUX DISEASE
     Dates: start: 20080505
  11. PEPTO BISMOL [Concomitant]
  12. ROLAIDS [Concomitant]
  13. TOPROL [Concomitant]
     Indication: HYPERTENSION
  14. ZOLOFT [Concomitant]
     Indication: DEPRESSION
  15. NEURONTIN [Concomitant]
     Indication: RESTLESS LEGS SYNDROME
  16. FRUSEMIDE [Concomitant]
     Indication: CARDIAC DISORDER
  17. NORVASC [Concomitant]
     Indication: CARDIAC DISORDER
  18. TRAMADOL [Concomitant]
     Indication: PAIN
  19. XANAX [Concomitant]
     Indication: ANXIETY
  20. PREMPRO [Concomitant]
     Dosage: 1 DAILY 0.45-1.5
  21. MYLANTA [Concomitant]

REACTIONS (19)
  - Neuropathy peripheral [Unknown]
  - Spinal column stenosis [Unknown]
  - Transient ischaemic attack [Unknown]
  - Hypertension [Unknown]
  - Nervous system disorder [Unknown]
  - Mass [Unknown]
  - Angina pectoris [Unknown]
  - Cerebrovascular accident [Unknown]
  - Depression [Unknown]
  - Osteoporosis [Unknown]
  - Multiple fractures [Unknown]
  - Foot fracture [Unknown]
  - Bone pain [Unknown]
  - Arthritis [Unknown]
  - Cardiovascular disorder [Unknown]
  - Anxiety [Unknown]
  - Liver disorder [Unknown]
  - Muscular weakness [Unknown]
  - Ligament sprain [Unknown]
